FAERS Safety Report 9058806 (Version 2)
Quarter: 2013Q1

REPORT INFORMATION
  Report Type: Spontaneous
  Country: BR (occurrence: BR)
  Receive Date: 20130204
  Receipt Date: 20130221
  Transmission Date: 20140127
  Serious: Yes (Other)
  Sender: FDA-Public Use
  Company Number: BR-ROCHE-1114943

PATIENT
  Sex: Female
  Weight: 88 kg

DRUGS (3)
  1. RIVOTRIL [Suspect]
     Indication: DEPRESSION
     Route: 048
     Dates: start: 199907
  2. RIVOTRIL [Suspect]
     Dosage: DOSE REDUCED
     Route: 048
     Dates: start: 201208
  3. RIVOTRIL [Suspect]
     Route: 048

REACTIONS (12)
  - Spinal disorder [Unknown]
  - Oral discomfort [Unknown]
  - Nausea [Recovered/Resolved]
  - Pain [Not Recovered/Not Resolved]
  - Skin disorder [Recovered/Resolved]
  - Hiatus hernia [Not Recovered/Not Resolved]
  - Diarrhoea [Unknown]
  - Headache [Recovered/Resolved]
  - Dizziness [Recovered/Resolved]
  - Vision blurred [Recovered/Resolved]
  - Depression [Recovered/Resolved]
  - Medication error [Unknown]
